FAERS Safety Report 11229023 (Version 1)
Quarter: 2015Q2

REPORT INFORMATION
  Report Type: Spontaneous
  Country: FR (occurrence: FR)
  Receive Date: 20150630
  Receipt Date: 20150630
  Transmission Date: 20150821
  Serious: Yes (Hospitalization)
  Sender: FDA-Public Use
  Company Number: FR-BAYER-2015-367612

PATIENT
  Age: 47 Year
  Sex: Female

DRUGS (1)
  1. CLARITYNE [Suspect]
     Active Substance: LORATADINE
     Dosage: UNK
     Dates: start: 201403, end: 201403

REACTIONS (1)
  - Tachycardia [Recovered/Resolved]

NARRATIVE: CASE EVENT DATE: 201403
